FAERS Safety Report 16270576 (Version 1)
Quarter: 2019Q2

REPORT INFORMATION
  Report Type: Spontaneous
  Country: FR (occurrence: FR)
  Receive Date: 20190503
  Receipt Date: 20190503
  Transmission Date: 20190711
  Serious: Yes (Hospitalization)
  Sender: FDA-Public Use
  Company Number: FR-VERTEX PHARMACEUTICALS-2019-003749

PATIENT
  Age: 12 Year
  Sex: Female

DRUGS (7)
  1. AUGMENTIN [Suspect]
     Active Substance: AMOXICILLIN\CLAVULANATE POTASSIUM
     Indication: INFECTION
     Dosage: 3 G, PER DAY
     Route: 048
     Dates: start: 20190313, end: 20190327
  2. ORKAMBI [Suspect]
     Active Substance: IVACAFTOR\LUMACAFTOR
     Indication: CYSTIC FIBROSIS
     Dosage: 4 TABLETS, PER DAY
     Route: 048
     Dates: start: 20181005, end: 20190404
  3. CIFLOX                             /00697201/ [Suspect]
     Active Substance: CIPROFLOXACIN
     Indication: INFECTION
     Dosage: 1000 MG, PER DAY
     Route: 048
     Dates: start: 20190318, end: 20190401
  4. CREON [Concomitant]
     Active Substance: PANCRELIPASE AMYLASE\PANCRELIPASE LIPASE\PANCRELIPASE PROTEASE
     Indication: CYSTIC FIBROSIS
     Dosage: 10 DOSAGE FORM, PER DAY
     Route: 048
     Dates: start: 20180701
  5. TOBI [Concomitant]
     Active Substance: TOBRAMYCIN
     Indication: INFECTION
     Dosage: 600 MG, PER DAY
     Route: 050
     Dates: start: 20190318
  6. VENTOLINE                          /00139501/ [Concomitant]
     Active Substance: ALBUTEROL
     Indication: ASTHMA
     Dosage: SI BESOIN
     Route: 050
  7. SOLUPRED                           /00016201/ [Suspect]
     Active Substance: PREDNISOLONE
     Indication: INFLAMMATION
     Dosage: 30 MICROGRAM, PER DAY
     Route: 048
     Dates: start: 20190318, end: 20190327

REACTIONS (2)
  - Gamma-glutamyltransferase increased [Recovering/Resolving]
  - Hepatocellular injury [Recovering/Resolving]

NARRATIVE: CASE EVENT DATE: 20190318
